FAERS Safety Report 5097906-X (Version None)
Quarter: 2006Q3

REPORT INFORMATION
  Report Type: 
  Country: None (occurrence: None)
  Receive Date: 20060905
  Receipt Date: 20060905
  Transmission Date: 20061208
  Serious: Yes (Other)
  Sender: FDA-Public Use
  Company Number: None

PATIENT
  Age: 34 Year
  Sex: Female
  Weight: 86.1834 kg

DRUGS (2)
  1. TOPAMAX [Suspect]
     Indication: AFFECTIVE DISORDER
     Dosage: 25 MG 1 X PER DAY PO
     Route: 048
     Dates: start: 20040301, end: 20040307
  2. TOPAMAX [Suspect]
     Dosage: 50 MG 1 PER DAY PO
     Route: 048
     Dates: start: 20040308, end: 20040311

REACTIONS (11)
  - BENIGN INTRACRANIAL HYPERTENSION [None]
  - BLINDNESS TRANSIENT [None]
  - CHOKING SENSATION [None]
  - DIZZINESS [None]
  - EYE PAIN [None]
  - FEELING ABNORMAL [None]
  - HEAD DISCOMFORT [None]
  - HEADACHE [None]
  - TINNITUS [None]
  - VISUAL ACUITY REDUCED [None]
  - VISUAL DISTURBANCE [None]
